FAERS Safety Report 10524691 (Version 3)
Quarter: 2015Q1

REPORT INFORMATION
  Report Type: Report from Study
  Country: US (occurrence: US)
  Receive Date: 20141017
  Receipt Date: 20150227
  Transmission Date: 20150720
  Serious: Yes (Other)
  Sender: FDA-Public Use
  Company Number: US-SA-2013SA109384

PATIENT
  Age: 68 Year
  Sex: Female

DRUGS (1)
  1. AUBAGIO [Suspect]
     Active Substance: TERIFLUNOMIDE
     Indication: MULTIPLE SCLEROSIS
     Route: 048
     Dates: start: 20130425

REACTIONS (22)
  - Malaise [Unknown]
  - Rash generalised [Not Recovered/Not Resolved]
  - Onychomadesis [Unknown]
  - Pruritus [Unknown]
  - Anaemia [Unknown]
  - Tremor [Unknown]
  - Dyspnoea [Unknown]
  - Nausea [Unknown]
  - Upper gastrointestinal haemorrhage [Unknown]
  - Cough [Unknown]
  - Wheezing [Unknown]
  - Insomnia [Not Recovered/Not Resolved]
  - Nail disorder [Unknown]
  - Decreased appetite [Unknown]
  - Dysgeusia [Unknown]
  - Pain in extremity [Not Recovered/Not Resolved]
  - Hair texture abnormal [Unknown]
  - Memory impairment [Unknown]
  - Alopecia [Unknown]
  - Colon operation [Unknown]
  - Restless legs syndrome [Not Recovered/Not Resolved]
  - Pain [Unknown]
